APPROVED DRUG PRODUCT: BRETYLIUM TOSYLATE
Active Ingredient: BRETYLIUM TOSYLATE
Strength: 50MG/ML
Dosage Form/Route: INJECTABLE;INJECTION
Application: A070546 | Product #001
Applicant: HIKMA PHARMACEUTICALS USA INC
Approved: May 14, 1986 | RLD: No | RS: No | Type: DISCN